FAERS Safety Report 19578877 (Version 1)
Quarter: 2021Q3

REPORT INFORMATION
  Report Type: Report from Study
  Country: DE (occurrence: DE)
  Receive Date: 20210719
  Receipt Date: 20210719
  Transmission Date: 20211014
  Serious: Yes (Hospitalization, Other)
  Sender: FDA-Public Use
  Company Number: DE-TAKEDA-2021TUS040413

PATIENT
  Age: 60 Year
  Sex: Male

DRUGS (48)
  1. TEDUGLUTIDE [Suspect]
     Active Substance: TEDUGLUTIDE
     Indication: SHORT-BOWEL SYNDROME
     Dosage: 3.8 MILLIGRAM (0.05 MG/KG), 7 DOSES PER WEEK
     Route: 065
     Dates: start: 20150511, end: 20150911
  2. TEDUGLUTIDE [Suspect]
     Active Substance: TEDUGLUTIDE
     Dosage: 2 MILLIGRAM (0.03 MG/KG), 7 DOSES PER WEEK
     Route: 065
     Dates: start: 20151016, end: 201604
  3. TEDUGLUTIDE [Suspect]
     Active Substance: TEDUGLUTIDE
     Dosage: 2 MILLIGRAM (0.03 MG/KG), 3 DOSES PER WEEK
     Route: 065
     Dates: start: 20150925, end: 20151001
  4. TEDUGLUTIDE [Suspect]
     Active Substance: TEDUGLUTIDE
     Dosage: 2 MILLIGRAM (0.03 MG/KG), 4 DOSES PER WEEK
     Route: 065
     Dates: start: 20151002, end: 20151008
  5. TEDUGLUTIDE [Suspect]
     Active Substance: TEDUGLUTIDE
     Dosage: 2 MILLIGRAM (0.03 MG/KG), 4 DOSES PER WEEK
     Route: 065
     Dates: start: 20151009, end: 20151015
  6. TEDUGLUTIDE [Suspect]
     Active Substance: TEDUGLUTIDE
     Dosage: 2.7 MILLIGRAM (0.04 MG/KG), 7 DOSES PER WEEK
     Route: 065
     Dates: start: 20161027, end: 201910
  7. TEDUGLUTIDE [Suspect]
     Active Substance: TEDUGLUTIDE
     Dosage: 3.8 MILLIGRAM (0.05 MG/KG), 7 DOSES PER WEEK
     Route: 065
     Dates: start: 20191003
  8. TEDUGLUTIDE [Suspect]
     Active Substance: TEDUGLUTIDE
     Dosage: 2 MILLIGRAM (0.03 MG/KG), 3 DOSES PER WEEK
     Route: 065
     Dates: start: 20150925, end: 20151001
  9. TEDUGLUTIDE [Suspect]
     Active Substance: TEDUGLUTIDE
     Dosage: 2 MILLIGRAM (0.03 MG/KG), 3 DOSES PER WEEK
     Route: 065
     Dates: start: 20150925, end: 20151001
  10. TEDUGLUTIDE [Suspect]
     Active Substance: TEDUGLUTIDE
     Dosage: 4 MILLIGRAM (0.05 MG/KG), 7 DOSES PER WEEK
     Route: 065
     Dates: start: 201907, end: 20190806
  11. TEDUGLUTIDE [Suspect]
     Active Substance: TEDUGLUTIDE
     Dosage: 3.8 MILLIGRAM (0.05 MG/KG), 7 DOSES PER WEEK
     Route: 065
     Dates: start: 20191003
  12. TEDUGLUTIDE [Suspect]
     Active Substance: TEDUGLUTIDE
     Indication: SHORT-BOWEL SYNDROME
     Dosage: 3.8 MILLIGRAM (0.05 MG/KG), 7 DOSES PER WEEK
     Route: 065
     Dates: start: 20150511, end: 20150911
  13. TEDUGLUTIDE [Suspect]
     Active Substance: TEDUGLUTIDE
     Dosage: 2 MILLIGRAM (0.03 MG/KG), 4 DOSES PER WEEK
     Route: 065
     Dates: start: 20150918, end: 20150924
  14. TEDUGLUTIDE [Suspect]
     Active Substance: TEDUGLUTIDE
     Dosage: 2 MILLIGRAM (0.03 MG/KG), 4 DOSES PER WEEK
     Route: 065
     Dates: start: 20151009, end: 20151015
  15. TEDUGLUTIDE [Suspect]
     Active Substance: TEDUGLUTIDE
     Dosage: 2 MILLIGRAM (0.03 MG/KG), 4 DOSES PER WEEK
     Route: 065
     Dates: start: 20151009, end: 20151015
  16. TEDUGLUTIDE [Suspect]
     Active Substance: TEDUGLUTIDE
     Dosage: 4 MILLIGRAM (0.05 MG/KG), 7 DOSES PER WEEK
     Route: 065
     Dates: start: 201907, end: 20190806
  17. TEDUGLUTIDE [Suspect]
     Active Substance: TEDUGLUTIDE
     Dosage: 3.6 MILLIGRAM (0.05 MG/KG), 7 DOSES PER WEEK
     Route: 065
     Dates: start: 20190807, end: 20191002
  18. VIGANTOL [Concomitant]
     Indication: VITAMIN SUPPLEMENTATION
     Dosage: 999 UNK
     Route: 065
     Dates: start: 201910
  19. LOPERAMIDE [Concomitant]
     Active Substance: LOPERAMIDE
     Indication: DIARRHOEA
     Dosage: 2 MILLIGRAM, QID
     Route: 048
     Dates: start: 20191002
  20. TEDUGLUTIDE [Suspect]
     Active Substance: TEDUGLUTIDE
     Dosage: 2 MILLIGRAM (0.03 MG/KG), 7 DOSES PER WEEK
     Route: 065
     Dates: start: 20151016, end: 201604
  21. TEDUGLUTIDE [Suspect]
     Active Substance: TEDUGLUTIDE
     Dosage: 2 MILLIGRAM (0.03 MG/KG), 4 DOSES PER WEEK
     Route: 065
     Dates: start: 20151002, end: 20151008
  22. TEDUGLUTIDE [Suspect]
     Active Substance: TEDUGLUTIDE
     Dosage: 2.5 MILLIGRAM (0.03 MG/KG), 7 DOSES PER WEEK
     Route: 065
     Dates: start: 20160419, end: 20161026
  23. TEDUGLUTIDE [Suspect]
     Active Substance: TEDUGLUTIDE
     Dosage: 4 MILLIGRAM (0.05 MG/KG), 7 DOSES PER WEEK
     Route: 065
     Dates: start: 201907, end: 20190806
  24. TEDUGLUTIDE [Suspect]
     Active Substance: TEDUGLUTIDE
     Dosage: 3.8 MILLIGRAM (0.05 MG/KG), 7 DOSES PER WEEK
     Route: 065
     Dates: start: 20191003
  25. MAGNESIUM [Concomitant]
     Active Substance: MAGNESIUM
     Indication: MUSCLE SPASMS
     Dosage: 999 UNK, 3/WEEK
     Route: 042
     Dates: start: 201811, end: 20200108
  26. TEDUGLUTIDE [Suspect]
     Active Substance: TEDUGLUTIDE
     Dosage: 2 MILLIGRAM (0.03 MG/KG), 7 DOSES PER WEEK
     Route: 065
     Dates: start: 20151016, end: 201604
  27. TEDUGLUTIDE [Suspect]
     Active Substance: TEDUGLUTIDE
     Dosage: 2 MILLIGRAM (0.03 MG/KG), 4 DOSES PER WEEK
     Route: 065
     Dates: start: 20151002, end: 20151008
  28. TEDUGLUTIDE [Suspect]
     Active Substance: TEDUGLUTIDE
     Dosage: 2.5 MILLIGRAM (0.03 MG/KG), 7 DOSES PER WEEK
     Route: 065
     Dates: start: 20160419, end: 20161026
  29. TEDUGLUTIDE [Suspect]
     Active Substance: TEDUGLUTIDE
     Dosage: 2.7 MILLIGRAM (0.04 MG/KG), 7 DOSES PER WEEK
     Route: 065
     Dates: start: 20161027, end: 201910
  30. TEDUGLUTIDE [Suspect]
     Active Substance: TEDUGLUTIDE
     Dosage: 2.7 MILLIGRAM (0.04 MG/KG), 7 DOSES PER WEEK
     Route: 065
     Dates: start: 20161027, end: 201910
  31. TEDUGLUTIDE [Suspect]
     Active Substance: TEDUGLUTIDE
     Dosage: 3.6 MILLIGRAM (0.05 MG/KG), 7 DOSES PER WEEK
     Route: 065
     Dates: start: 20190807, end: 20191002
  32. TEDUGLUTIDE [Suspect]
     Active Substance: TEDUGLUTIDE
     Dosage: 2 MILLIGRAM (0.03 MG/KG), 4 DOSES PER WEEK
     Route: 065
     Dates: start: 20150918, end: 20150924
  33. TEDUGLUTIDE [Suspect]
     Active Substance: TEDUGLUTIDE
     Dosage: 2 MILLIGRAM (0.03 MG/KG), 7 DOSES PER WEEK
     Route: 065
     Dates: start: 20151016, end: 201604
  34. TEDUGLUTIDE [Suspect]
     Active Substance: TEDUGLUTIDE
     Dosage: 2.7 MILLIGRAM (0.04 MG/KG), 7 DOSES PER WEEK
     Route: 065
     Dates: start: 20161027, end: 201910
  35. TEDUGLUTIDE [Suspect]
     Active Substance: TEDUGLUTIDE
     Dosage: 3.8 MILLIGRAM (0.05 MG/KG), 7 DOSES PER WEEK
     Route: 065
     Dates: start: 20191003
  36. TEDUGLUTIDE [Suspect]
     Active Substance: TEDUGLUTIDE
     Indication: SHORT-BOWEL SYNDROME
     Dosage: 3.8 MILLIGRAM (0.05 MG/KG), 7 DOSES PER WEEK
     Route: 065
     Dates: start: 20150511, end: 20150911
  37. TEDUGLUTIDE [Suspect]
     Active Substance: TEDUGLUTIDE
     Dosage: 2 MILLIGRAM (0.03 MG/KG), 4 DOSES PER WEEK
     Route: 065
     Dates: start: 20150918, end: 20150924
  38. TEDUGLUTIDE [Suspect]
     Active Substance: TEDUGLUTIDE
     Dosage: 2 MILLIGRAM (0.03 MG/KG), 4 DOSES PER WEEK
     Route: 065
     Dates: start: 20151009, end: 20151015
  39. PENICILLIN [Concomitant]
     Active Substance: PENICILLIN
     Indication: RESPIRATORY TRACT INFECTION
     Dosage: 999 UNK
     Route: 065
     Dates: start: 201906, end: 201906
  40. TEDUGLUTIDE [Suspect]
     Active Substance: TEDUGLUTIDE
     Indication: SHORT-BOWEL SYNDROME
     Dosage: 3.8 MILLIGRAM (0.05 MG/KG), 7 DOSES PER WEEK
     Route: 065
     Dates: start: 20150511, end: 20150911
  41. TEDUGLUTIDE [Suspect]
     Active Substance: TEDUGLUTIDE
     Dosage: 2 MILLIGRAM (0.03 MG/KG), 4 DOSES PER WEEK
     Route: 065
     Dates: start: 20150918, end: 20150924
  42. TEDUGLUTIDE [Suspect]
     Active Substance: TEDUGLUTIDE
     Dosage: 2 MILLIGRAM (0.03 MG/KG), 3 DOSES PER WEEK
     Route: 065
     Dates: start: 20150925, end: 20151001
  43. TEDUGLUTIDE [Suspect]
     Active Substance: TEDUGLUTIDE
     Dosage: 2 MILLIGRAM (0.03 MG/KG), 4 DOSES PER WEEK
     Route: 065
     Dates: start: 20151002, end: 20151008
  44. TEDUGLUTIDE [Suspect]
     Active Substance: TEDUGLUTIDE
     Dosage: 2.5 MILLIGRAM (0.03 MG/KG), 7 DOSES PER WEEK
     Route: 065
     Dates: start: 20160419, end: 20161026
  45. TEDUGLUTIDE [Suspect]
     Active Substance: TEDUGLUTIDE
     Dosage: 2.5 MILLIGRAM (0.03 MG/KG), 7 DOSES PER WEEK
     Route: 065
     Dates: start: 20160419, end: 20161026
  46. TEDUGLUTIDE [Suspect]
     Active Substance: TEDUGLUTIDE
     Dosage: 4 MILLIGRAM (0.05 MG/KG), 7 DOSES PER WEEK
     Route: 065
     Dates: start: 201907, end: 20190806
  47. TEDUGLUTIDE [Suspect]
     Active Substance: TEDUGLUTIDE
     Dosage: 3.6 MILLIGRAM (0.05 MG/KG), 7 DOSES PER WEEK
     Route: 065
     Dates: start: 20190807, end: 20191002
  48. TEDUGLUTIDE [Suspect]
     Active Substance: TEDUGLUTIDE
     Dosage: 3.6 MILLIGRAM (0.05 MG/KG), 7 DOSES PER WEEK
     Route: 065
     Dates: start: 20190807, end: 20191002

REACTIONS (1)
  - Joint swelling [Unknown]

NARRATIVE: CASE EVENT DATE: 20201009
